FAERS Safety Report 5925538-7 (Version None)
Quarter: 2008Q4

REPORT INFORMATION
  Report Type: 
  Country: None (occurrence: None)
  Receive Date: 20081021
  Receipt Date: 20081009
  Transmission Date: 20090506
  Serious: Yes (Death, Life-Threatening, Hospitalization)
  Sender: FDA-Public Use
  Company Number: JP-ROCHE-516590

PATIENT
  Sex: Male

DRUGS (22)
  1. VALGANCICLOVIR HCL [Suspect]
     Indication: ENCEPHALITIS CYTOMEGALOVIRUS
     Route: 048
     Dates: start: 20061209, end: 20070414
  2. VALGANCICLOVIR HCL [Suspect]
     Route: 048
     Dates: start: 20061123, end: 20061208
  3. COMBIVIR [Suspect]
     Indication: HIV INFECTION
     Dosage: RECEIVED 2 TABLETS DAILY.
     Route: 048
     Dates: start: 20061114, end: 20061211
  4. KALETRA [Suspect]
     Indication: HIV INFECTION
     Dosage: RECEIVED 4 TABLETS DAILY.
     Route: 048
     Dates: start: 20061114, end: 20070223
  5. FOSCAVIR [Suspect]
     Indication: ENCEPHALITIS CYTOMEGALOVIRUS
     Route: 041
     Dates: start: 20061123, end: 20061208
  6. FOSCAVIR [Suspect]
     Route: 041
     Dates: start: 20061209, end: 20061230
  7. FOSCAVIR [Suspect]
     Route: 041
     Dates: start: 20070120, end: 20070201
  8. EPZICOM [Suspect]
     Indication: HIV INFECTION
     Dosage: RECEIVED 1 TABLET DAILY.
     Route: 048
     Dates: start: 20061212, end: 20070319
  9. ROCEPHIN [Concomitant]
     Route: 051
     Dates: start: 20061025, end: 20061031
  10. ROCEPHIN [Concomitant]
     Route: 051
     Dates: start: 20061108, end: 20061123
  11. FUNGIZONE [Concomitant]
     Dosage: ROUTE: OROPHARINGEAL DOSAGE: ON AN AS NEEDED BASIS
     Route: 050
     Dates: start: 20061103, end: 20070220
  12. ZITHROMAX [Concomitant]
     Route: 048
     Dates: start: 20061106, end: 20070414
  13. DIFLUCAN [Concomitant]
     Dates: start: 20061108, end: 20061116
  14. DIFLUCAN [Concomitant]
     Dates: start: 20070121, end: 20070127
  15. GASTER D [Concomitant]
     Route: 048
     Dates: start: 20061116, end: 20070306
  16. MEPRON [Concomitant]
     Dates: start: 20061122, end: 20070414
  17. MUCOSTA [Concomitant]
     Route: 048
     Dates: start: 20070116, end: 20070228
  18. REYATAZ [Concomitant]
     Indication: HIV INFECTION
     Route: 048
     Dates: start: 20070224, end: 20070319
  19. FAMOTIDINE [Concomitant]
     Route: 051
     Dates: start: 20070307, end: 20070414
  20. ALBUMIN (HUMAN) [Concomitant]
     Route: 051
     Dates: start: 20070312, end: 20070314
  21. LASIX [Concomitant]
     Route: 051
     Dates: start: 20070312, end: 20070414
  22. COTRIM [Concomitant]
     Dosage: RECEIVED 1 TABLET DAILY.
     Route: 048
     Dates: start: 20061106, end: 20061122

REACTIONS (14)
  - ACUTE RESPIRATORY FAILURE [None]
  - BONE MARROW FAILURE [None]
  - C-REACTIVE PROTEIN INCREASED [None]
  - CEREBRAL TOXOPLASMOSIS [None]
  - DISSEMINATED INTRAVASCULAR COAGULATION [None]
  - EATING DISORDER [None]
  - ENCEPHALITIS [None]
  - HYPOALBUMINAEMIA [None]
  - LOSS OF CONSCIOUSNESS [None]
  - PANCYTOPENIA [None]
  - PNEUMOTHORAX [None]
  - RESPIRATORY ARREST [None]
  - SEPSIS [None]
  - STAPHYLOCOCCAL SEPSIS [None]
